FAERS Safety Report 23711180 (Version 1)
Quarter: 2024Q2

REPORT INFORMATION
  Report Type: Spontaneous
  Country: AT (occurrence: AT)
  Receive Date: 20240405
  Receipt Date: 20240405
  Transmission Date: 20240715
  Serious: No
  Sender: FDA-Public Use
  Company Number: AT-ALKEM LABORATORIES LIMITED-AT-ALKEM-2024-03199

PATIENT
  Sex: Female

DRUGS (5)
  1. SIROLIMUS [Suspect]
     Active Substance: SIROLIMUS
     Indication: Cutaneous sarcoidosis
     Dosage: UNK, BID (0.1 PERCENT)
     Route: 061
  2. SIROLIMUS [Suspect]
     Active Substance: SIROLIMUS
     Dosage: 6 MILLIGRAM
     Route: 065
  3. SIROLIMUS [Suspect]
     Active Substance: SIROLIMUS
     Dosage: 2 MILLIGRAM, OD
     Route: 048
  4. SIROLIMUS [Suspect]
     Active Substance: SIROLIMUS
     Dosage: UNK
     Route: 058
  5. DICLOFENAC [Concomitant]
     Active Substance: DICLOFENAC
     Indication: Product used for unknown indication
     Dosage: UNK
     Route: 065

REACTIONS (1)
  - Therapy non-responder [Unknown]
